FAERS Safety Report 13833612 (Version 3)
Quarter: 2017Q3

REPORT INFORMATION
  Report Type: Spontaneous
  Country: US (occurrence: US)
  Receive Date: 20170804
  Receipt Date: 20170912
  Transmission Date: 20171127
  Serious: No
  Sender: FDA-Public Use
  Company Number: PHEH2017US023807

PATIENT
  Sex: Female

DRUGS (2)
  1. ALPRAZOLAM TABLETS USP [Suspect]
     Active Substance: ALPRAZOLAM
     Indication: POST-TRAUMATIC STRESS DISORDER
  2. ALPRAZOLAM TABLETS USP [Suspect]
     Active Substance: ALPRAZOLAM
     Indication: MENIERE^S DISEASE
     Dosage: 2 MG, UNK
     Route: 048

REACTIONS (5)
  - Feeling abnormal [Recovering/Resolving]
  - Tinnitus [Recovering/Resolving]
  - Product taste abnormal [Unknown]
  - Dizziness [Recovering/Resolving]
  - Headache [Recovering/Resolving]

NARRATIVE: CASE EVENT DATE: 20170728
